FAERS Safety Report 18498675 (Version 1)
Quarter: 2020Q4

REPORT INFORMATION
  Report Type: Other
  Country: CA (occurrence: CA)
  Receive Date: 20201113
  Receipt Date: 20201113
  Transmission Date: 20210114
  Serious: Yes (Hospitalization)
  Sender: FDA-Public Use
  Company Number: CA-CELLTRION INC.-2020CA030833

PATIENT

DRUGS (15)
  1. DOXORUBICIN HYDROCHLORIDE INJECTION [Suspect]
     Active Substance: DOXORUBICIN HYDROCHLORIDE
     Indication: LYMPHOMA
     Dosage: 50 MG/M2
     Route: 042
  2. DILTIAZEM. [Concomitant]
     Active Substance: DILTIAZEM
  3. ELIQUIS [Concomitant]
     Active Substance: APIXABAN
  4. SENOKOT [Concomitant]
     Active Substance: SENNOSIDES
  5. DILAUDID [Concomitant]
     Active Substance: HYDROMORPHONE HYDROCHLORIDE
  6. SERAX [Concomitant]
     Active Substance: OXAZEPAM
  7. STEMETIL [Concomitant]
     Active Substance: PROCHLORPERAZINE
  8. CYCLOPHOSPHAMIDE. [Suspect]
     Active Substance: CYCLOPHOSPHAMIDE
     Indication: LYMPHOMA
     Dosage: 750 MG/M2
     Route: 042
  9. ASA [Concomitant]
     Active Substance: ASPIRIN
  10. TYLENOL [Concomitant]
     Active Substance: ACETAMINOPHEN
  11. VINCRISTINE SULFATE INJECTION USP [Suspect]
     Active Substance: VINCRISTINE SULFATE
     Indication: LYMPHOMA
     Dosage: 1.4 MG/M2; INJECTION USP
     Route: 042
  12. FILGRASTIM [Concomitant]
     Active Substance: FILGRASTIM
  13. NORVASC [Concomitant]
     Active Substance: AMLODIPINE BESYLATE
  14. RITUXIMAB (UNKNOWN) [Suspect]
     Active Substance: RITUXIMAB
     Indication: LYMPHOMA
     Dosage: 375 MG/M2
     Route: 042
  15. PREDNISONE. [Suspect]
     Active Substance: PREDNISONE
     Indication: LYMPHOMA
     Dosage: 100 MILLIGRAM, QD, 1 EVERY 1 DAYS
     Route: 065

REACTIONS (3)
  - Abdominal sepsis [Not Recovered/Not Resolved]
  - Bacterial translocation [Not Recovered/Not Resolved]
  - Colitis [Not Recovered/Not Resolved]
